FAERS Safety Report 16202009 (Version 1)
Quarter: 2019Q2

REPORT INFORMATION
  Report Type: Spontaneous
  Country: US (occurrence: US)
  Receive Date: 20190416
  Receipt Date: 20190416
  Transmission Date: 20190711
  Serious: Yes (Other)
  Sender: FDA-Public Use
  Company Number: US-ROCHE-2301453

PATIENT
  Sex: Female

DRUGS (6)
  1. PERJETA [Suspect]
     Active Substance: PERTUZUMAB
     Indication: HER-2 POSITIVE BREAST CANCER
     Dosage: ONGOING: YES
     Route: 065
     Dates: start: 201806
  2. TAXOL [Suspect]
     Active Substance: PACLITAXEL
     Indication: HER-2 POSITIVE BREAST CANCER
     Dosage: ONGOING: NO
     Route: 065
     Dates: start: 201506, end: 201512
  3. TAXOL [Suspect]
     Active Substance: PACLITAXEL
     Dosage: ONGOING: NO
     Route: 065
     Dates: start: 2017, end: 201903
  4. HERCEPTIN [Suspect]
     Active Substance: TRASTUZUMAB
     Indication: HER-2 POSITIVE BREAST CANCER
     Dosage: ONGOING: NO
     Route: 065
     Dates: start: 201506, end: 201512
  5. HERCEPTIN [Suspect]
     Active Substance: TRASTUZUMAB
     Dosage: ONGOING: YES
     Route: 065
     Dates: start: 2017
  6. PERJETA [Suspect]
     Active Substance: PERTUZUMAB
     Route: 065

REACTIONS (6)
  - Neuropathy peripheral [Not Recovered/Not Resolved]
  - Dizziness [Unknown]
  - Ejection fraction decreased [Not Recovered/Not Resolved]
  - Tumour haemorrhage [Not Recovered/Not Resolved]
  - Blood glucose decreased [Unknown]
  - Lymphoedema [Unknown]

NARRATIVE: CASE EVENT DATE: 2018
